FAERS Safety Report 6298275-X (Version None)
Quarter: 2009Q3

REPORT INFORMATION
  Report Type: 
  Country: None (occurrence: None)
  Receive Date: 20090805
  Receipt Date: 20090729
  Transmission Date: 20100115
  Serious: Yes (Death)
  Sender: FDA-Public Use
  Company Number: JP-EISAI INC.-E2090-00733-SPO-JP

PATIENT
  Sex: Female

DRUGS (1)
  1. TRERIEF [Suspect]
     Indication: PARKINSON'S DISEASE
     Route: 048
     Dates: start: 20090424, end: 20090512

REACTIONS (1)
  - FEMALE GENITAL TRACT FISTULA [None]
